FAERS Safety Report 8025358-6 (Version None)
Quarter: 2012Q1

REPORT INFORMATION
  Report Type: 
  Country: None (occurrence: None)
  Receive Date: 20120105
  Receipt Date: 20111226
  Transmission Date: 20120608
  Serious: Yes (Death, Other)
  Sender: FDA-Public Use
  Company Number: FR-BAXTER-2012BH000117

PATIENT
  Age: 15 Month
  Sex: Female
  Weight: 9 kg

DRUGS (5)
  1. CHLORPROMAZINE HCL [Concomitant]
     Indication: ANTIEMETIC SUPPORTIVE CARE
     Route: 042
     Dates: start: 20111020
  2. ETOPOPHOS PRESERVATIVE FREE [Concomitant]
     Indication: AESTHESIONEUROBLASTOMA
     Route: 042
     Dates: start: 20111021, end: 20111022
  3. ZOFRAN [Concomitant]
     Indication: ANTIEMETIC SUPPORTIVE CARE
     Route: 042
     Dates: start: 20111020
  4. UROMITEXAN [Concomitant]
     Indication: PROPHYLAXIS
     Route: 042
     Dates: start: 20111021, end: 20111021
  5. IFOSFAMIDE [Suspect]
     Indication: AESTHESIONEUROBLASTOMA
     Route: 042
     Dates: start: 20111021, end: 20111021

REACTIONS (2)
  - MENINGITIS [None]
  - ENCEPHALOPATHY [None]
